FAERS Safety Report 17650650 (Version 1)
Quarter: 2020Q2

REPORT INFORMATION
  Report Type: Spontaneous
  Country: FR (occurrence: FR)
  Receive Date: 20200409
  Receipt Date: 20200409
  Transmission Date: 20200713
  Serious: Yes (Other)
  Sender: FDA-Public Use
  Company Number: FR-ACCORD-178323

PATIENT
  Age: 72 Year
  Sex: Male
  Weight: 79 kg

DRUGS (16)
  1. RAMIPRIL. [Concomitant]
     Active Substance: RAMIPRIL
     Route: 048
  2. CARBOPLATIN. [Suspect]
     Active Substance: CARBOPLATIN
     Indication: BRONCHIAL CARCINOMA
     Dosage: UNSPECIFIED
     Route: 042
     Dates: start: 201910
  3. PRIMPERAN [Concomitant]
     Active Substance: METOCLOPRAMIDE HYDROCHLORIDE
     Dosage: SCORED TABLET
     Route: 048
  4. GLYCOPYRRONIUM [Concomitant]
     Active Substance: GLYCOPYRRONIUM
     Route: 055
  5. TOUJEO [Concomitant]
     Active Substance: INSULIN GLARGINE
     Route: 058
  6. CRESTOR [Concomitant]
     Active Substance: ROSUVASTATIN CALCIUM
     Route: 048
  7. ETOPOSIDE. [Suspect]
     Active Substance: ETOPOSIDE
     Indication: BRONCHIAL CARCINOMA
     Dosage: UNSPECIFIED
     Route: 042
     Dates: start: 201910
  8. PERMIXON [Concomitant]
     Active Substance: HERBALS\SAW PALMETTO
     Route: 048
  9. ZIEXTENZO [Concomitant]
     Active Substance: PEGFILGRASTIM-BMEZ
     Dosage: UNSPECIFIED
     Route: 058
     Dates: start: 20191201
  10. KESTIN [Concomitant]
     Active Substance: EBASTINE
     Dosage: UNSPECIFIED
     Route: 048
  11. DERMOVAL, [Concomitant]
     Dosage: UNSPECIFIED
     Route: 003
  12. BINOCRIT [Concomitant]
     Active Substance: ERYTHROPOIETIN
     Route: 058
  13. LERCAN [Concomitant]
     Active Substance: LERCANIDIPINE
     Dosage: SCORED
     Route: 048
  14. PARACETAMOL [Concomitant]
     Active Substance: ACETAMINOPHEN
     Route: 048
  15. LANSOPRAZOLE. [Concomitant]
     Active Substance: LANSOPRAZOLE
     Route: 048
  16. ONBREZ BREEZHALER [Concomitant]
     Active Substance: INDACATEROL
     Dosage: 150 MICROGRAMS
     Route: 055

REACTIONS (1)
  - Toxic skin eruption [Not Recovered/Not Resolved]

NARRATIVE: CASE EVENT DATE: 201912
